FAERS Safety Report 23307919 (Version 1)
Quarter: 2023Q4

REPORT INFORMATION
  Report Type: Spontaneous
  Country: US (occurrence: US)
  Receive Date: 20231218
  Receipt Date: 20231218
  Transmission Date: 20240110
  Serious: No
  Sender: FDA-Public Use
  Company Number: US-ABBVIE-2304023US

PATIENT

DRUGS (3)
  1. BOTOX [Suspect]
     Active Substance: ONABOTULINUMTOXINA
     Indication: Skin wrinkling
     Dosage: TIME INTERVAL: AS NECESSARY: DOSE DESC: UNK, SINGLE
     Dates: start: 20230207, end: 20230207
  2. JUVEDERM [Suspect]
     Active Substance: HYALURONIC ACID
     Indication: Product used for unknown indication
     Dosage: DOSE DESC: UNK
  3. JUVEDERM [Suspect]
     Active Substance: HYALURONIC ACID
     Indication: Product used for unknown indication
     Dosage: DOSE DESC: UNK

REACTIONS (5)
  - Swelling face [Not Recovered/Not Resolved]
  - Fatigue [Recovering/Resolving]
  - Pruritus [Recovering/Resolving]
  - Urticaria [Recovering/Resolving]
  - Headache [Not Recovered/Not Resolved]

NARRATIVE: CASE EVENT DATE: 20230207
